FAERS Safety Report 12945773 (Version 1)
Quarter: 2016Q4

REPORT INFORMATION
  Report Type: Spontaneous
  Country: US (occurrence: US)
  Receive Date: 20161116
  Receipt Date: 20161116
  Transmission Date: 20170207
  Serious: No
  Sender: FDA-Public Use
  Company Number: US-009507513-1611USA002425

PATIENT
  Age: 32 Year
  Sex: Female
  Weight: 49.89 kg

DRUGS (2)
  1. NEXPLANON [Suspect]
     Active Substance: ETONOGESTREL
     Indication: CONTRACEPTION
     Dosage: 3 YEAR IMPLANT, IMPLANT LEFT ARM
  2. ZOLOFT [Concomitant]
     Active Substance: SERTRALINE HYDROCHLORIDE

REACTIONS (3)
  - Abdominal pain upper [Unknown]
  - Vaginal haemorrhage [Unknown]
  - Breast pain [Unknown]

NARRATIVE: CASE EVENT DATE: 201610
